FAERS Safety Report 13969915 (Version 8)
Quarter: 2018Q3

REPORT INFORMATION
  Report Type: Spontaneous
  Country: DE (occurrence: DE)
  Receive Date: 20170914
  Receipt Date: 20180927
  Transmission Date: 20181010
  Serious: Yes (Other)
  Sender: FDA-Public Use
  Company Number: DE-PFIZER INC-2017393934

PATIENT
  Age: 76 Year
  Sex: Male
  Weight: 81 kg

DRUGS (23)
  1. TRANEXAMIC ACID. [Suspect]
     Active Substance: TRANEXAMIC ACID
     Dosage: 2 G, 1XDAY, (500 MG 5 ML)
  2. HEPARIN?RATIOPHARM [Suspect]
     Active Substance: HEPARIN SODIUM
     Dosage: 30000 IU, UNK
     Dates: start: 20170830
  3. HEPARIN?RATIOPHARM [Suspect]
     Active Substance: HEPARIN SODIUM
     Dosage: 70000 IU (INTERNATIONAL UNIT), DAILY
     Route: 042
  4. NORADRENALINE [Concomitant]
     Active Substance: NOREPINEPHRINE
     Dosage: 0.35MG/KG/MIN
  5. STEROFUNDIN B [Concomitant]
     Dosage: 70000 IU, 1X/DAY
     Dates: start: 20170830
  6. HEPARIN?RATIOPHARM [Suspect]
     Active Substance: HEPARIN SODIUM
     Dosage: 30000 IU, UNK
     Dates: end: 20170830
  7. TRAVATAN [Concomitant]
     Active Substance: TRAVOPROST
     Dosage: UNK
  8. CUSTODIOL [Concomitant]
     Dosage: 950 ML, UNK
     Dates: start: 20170830
  9. TRANEXAMIC ACID. [Suspect]
     Active Substance: TRANEXAMIC ACID
     Dosage: 2 G, UNK (10ML)
  10. HEPARIN?RATIOPHARM [Suspect]
     Active Substance: HEPARIN SODIUM
     Dosage: 70000 IU, DAILY
     Route: 042
  11. HEPARIN?RATIOPHARM [Suspect]
     Active Substance: HEPARIN SODIUM
     Dosage: 30000 IU, UNK
  12. ASPIRIN. [Concomitant]
     Active Substance: ASPIRIN
     Dosage: 100 MG, 1X/DAY
  13. ATORVASTATIN [Concomitant]
     Active Substance: ATORVASTATIN
     Dosage: 40 MG, DAILY
  14. SEVORANE [Concomitant]
     Active Substance: SEVOFLURANE
     Dosage: 70000 IU, 1X/DAY
     Dates: start: 20170830
  15. NORADRENALINE [Concomitant]
     Active Substance: NOREPINEPHRINE
     Dosage: 1HR POST?OP 1.0UG/KG/MIN
  16. HEPARIN?RATIOPHARM [Suspect]
     Active Substance: HEPARIN SODIUM
     Dosage: 70000 IU, DAILY
     Route: 042
  17. HEPARIN?RATIOPHARM [Suspect]
     Active Substance: HEPARIN SODIUM
     Dosage: 45000 IU, UNK
     Route: 042
  18. HEPARIN?RATIOPHARM [Suspect]
     Active Substance: HEPARIN SODIUM
     Dosage: 45000 IU, UNK
     Route: 042
  19. HEPARIN?RATIOPHARM [Suspect]
     Active Substance: HEPARIN SODIUM
     Dosage: 45000 IU, UNK
     Route: 042
  20. HEPARIN?RATIOPHARM [Suspect]
     Active Substance: HEPARIN SODIUM
     Dosage: 70000 IU (INTERNATIONAL UNIT), DAILY
     Route: 042
  21. NORADRENALINE [Concomitant]
     Active Substance: NOREPINEPHRINE
     Dosage: AFTER 8H POST?OP 0.15 UG/KG/MIN
  22. NORADRENALINE [Concomitant]
     Active Substance: NOREPINEPHRINE
     Dosage: 1 UG, UNK
     Route: 065
     Dates: start: 20170830
  23. TAMSULOSIN [Concomitant]
     Active Substance: TAMSULOSIN
     Dosage: 0.4 MG, 1X/DAY; 1 DF 1XDAY

REACTIONS (7)
  - Coagulation time prolonged [Unknown]
  - Vasodilatation [Recovered/Resolved]
  - Multiple organ dysfunction syndrome [Recovered/Resolved]
  - Arrhythmia [Unknown]
  - Hypotension [Unknown]
  - Haemoglobin increased [Recovered/Resolved]
  - Drug ineffective [Unknown]

NARRATIVE: CASE EVENT DATE: 20170830
